FAERS Safety Report 15952981 (Version 5)
Quarter: 2019Q3

REPORT INFORMATION
  Report Type: Spontaneous
  Country: US (occurrence: US)
  Receive Date: 20190211
  Receipt Date: 20190816
  Transmission Date: 20191004
  Serious: Yes (Death, Other)
  Sender: FDA-Public Use
  Company Number: US-ASTRAZENECA-2019SE10431

PATIENT
  Age: 27243 Day
  Sex: Female
  Weight: 90.7 kg

DRUGS (19)
  1. NEXIUM [Suspect]
     Active Substance: ESOMEPRAZOLE MAGNESIUM
     Indication: GASTROOESOPHAGEAL REFLUX DISEASE
     Route: 048
     Dates: start: 20140803
  2. NEURONTIN [Concomitant]
     Active Substance: GABAPENTIN
  3. AMBIEN [Concomitant]
     Active Substance: ZOLPIDEM TARTRATE
  4. XANAX [Concomitant]
     Active Substance: ALPRAZOLAM
  5. MIRAL [Concomitant]
  6. PROTONIX [Suspect]
     Active Substance: PANTOPRAZOLE SODIUM
     Indication: GASTROOESOPHAGEAL REFLUX DISEASE
     Route: 065
  7. PLAVIX [Concomitant]
     Active Substance: CLOPIDOGREL BISULFATE
  8. SIMVASTATIN. [Concomitant]
     Active Substance: SIMVASTATIN
  9. ZOFRAN [Concomitant]
     Active Substance: ONDANSETRON HYDROCHLORIDE
  10. ZYRTEC [Concomitant]
     Active Substance: CETIRIZINE HYDROCHLORIDE
  11. COREG [Concomitant]
     Active Substance: CARVEDILOL
  12. ALLOPURINOL. [Concomitant]
     Active Substance: ALLOPURINOL
  13. LISINOPRIL. [Concomitant]
     Active Substance: LISINOPRIL
  14. NORCO [Concomitant]
     Active Substance: ACETAMINOPHEN\HYDROCODONE BITARTRATE
  15. PRILOSEC [Suspect]
     Active Substance: OMEPRAZOLE MAGNESIUM
     Indication: GASTROOESOPHAGEAL REFLUX DISEASE
     Route: 048
  16. POTASSIUM [Concomitant]
     Active Substance: POTASSIUM
  17. TORSEMIDE. [Concomitant]
     Active Substance: TORSEMIDE
  18. ENOXAPARIN [Concomitant]
     Active Substance: ENOXAPARIN
  19. CELEXA [Concomitant]
     Active Substance: CITALOPRAM HYDROBROMIDE

REACTIONS (8)
  - Renal failure [Unknown]
  - Renal impairment [Unknown]
  - Rebound acid hypersecretion [Unknown]
  - Chronic kidney disease [Unknown]
  - Coronary artery disease [Fatal]
  - Acute kidney injury [Unknown]
  - Cardiac failure congestive [Fatal]
  - End stage renal disease [Fatal]

NARRATIVE: CASE EVENT DATE: 20140801
